FAERS Safety Report 10041115 (Version 6)
Quarter: 2020Q1

REPORT INFORMATION
  Report Type: Report from Study
  Country: CA (occurrence: CA)
  Receive Date: 20140327
  Receipt Date: 20200306
  Transmission Date: 20200409
  Serious: Yes (Disabling, Other)
  Sender: FDA-Public Use
  Company Number: PHHY2014CA036265

PATIENT
  Age: 54 Year
  Sex: Female

DRUGS (2)
  1. SANDOSTATIN LAR DEPOT [Suspect]
     Active Substance: OCTREOTIDE ACETATE
     Indication: ACROMEGALY
     Dosage: 20 MG, Q2W (EVERY 2 WEEKS)
     Route: 030
     Dates: start: 20090921
  2. SANDOSTATIN LAR DEPOT [Suspect]
     Active Substance: OCTREOTIDE ACETATE
     Dosage: 20 MG, Q3W (EVERY 3 WEEKS)
     Route: 030
     Dates: start: 20090921

REACTIONS (12)
  - Influenza [Unknown]
  - Nasal congestion [Unknown]
  - Vomiting [Unknown]
  - Malaise [Unknown]
  - Pain [Unknown]
  - Terminal state [Unknown]
  - Urticaria [Unknown]
  - Inappropriate schedule of product administration [Unknown]
  - Cataract [Recovered/Resolved]
  - Pneumonia [Unknown]
  - Rhinorrhoea [Unknown]
  - Diarrhoea [Unknown]

NARRATIVE: CASE EVENT DATE: 20090921
